FAERS Safety Report 16559962 (Version 1)
Quarter: 2019Q3

REPORT INFORMATION
  Report Type: Spontaneous
  Country: CZ (occurrence: CZ)
  Receive Date: 20190711
  Receipt Date: 20190711
  Transmission Date: 20191004
  Serious: Yes (Life-Threatening, Hospitalization, Other)
  Sender: FDA-Public Use
  Company Number: CZ-MYLANLABS-2019M1063250

PATIENT
  Age: 48 Year
  Sex: Female

DRUGS (1)
  1. PACLITAXEL. [Suspect]
     Active Substance: PACLITAXEL
     Indication: NEOPLASM MALIGNANT
     Dosage: UNK
     Dates: start: 20180412, end: 20180911

REACTIONS (6)
  - Neuropathy peripheral [Unknown]
  - Autoimmune thyroiditis [Unknown]
  - Neurotoxicity [Unknown]
  - Oedema [Unknown]
  - Dysarthria [Unknown]
  - Myxoedema [Unknown]

NARRATIVE: CASE EVENT DATE: 20190111
